FAERS Safety Report 4474548-8 (Version None)
Quarter: 2004Q4

REPORT INFORMATION
  Report Type: 
  Country: None (occurrence: None)
  Receive Date: 20041008
  Receipt Date: 20041001
  Transmission Date: 20050328
  Serious: Yes (Other)
  Sender: FDA-Public Use
  Company Number: KII-2004-0013512

PATIENT
  Age: 16 Year
  Sex: Female

DRUGS (6)
  1. OXYCONTIN [Suspect]
     Dosage: SEE TEXT, ORAL
     Route: 048
  2. TETRAHYDROCANNABINOL (TETRAHYDROCANNABINOL) [Suspect]
  3. COCAINE (COCAINE) [Suspect]
  4. SSRI [Concomitant]
  5. ANTIEPILEPTICS [Concomitant]
  6. OTHER HYPNOTICS AND SEDATIVES [Concomitant]

REACTIONS (6)
  - APNOEA [None]
  - CYANOSIS [None]
  - DEPRESSED LEVEL OF CONSCIOUSNESS [None]
  - DRUG ABUSER [None]
  - TACHYCARDIA [None]
  - TREMOR [None]
